FAERS Safety Report 9835687 (Version 2)
Quarter: 2014Q1

REPORT INFORMATION
  Report Type: Spontaneous
  Country: US (occurrence: US)
  Receive Date: 20140122
  Receipt Date: 20140211
  Transmission Date: 20141002
  Serious: No
  Sender: FDA-Public Use
  Company Number: US-B.I. PHARMACEUTICALS,INC./RIDGEFIELD-2014-BI-01794BP

PATIENT
  Age: 77 Year
  Sex: Male
  Weight: 111 kg

DRUGS (3)
  1. PRADAXA [Suspect]
     Indication: CEREBROVASCULAR ACCIDENT PROPHYLAXIS
     Dosage: 300 MG
     Route: 048
     Dates: start: 2011
  2. PRADAXA [Suspect]
     Dosage: 300 MG
     Route: 048
     Dates: start: 20131219
  3. DILTIAZEM HCL CR 120MG [Concomitant]
     Dosage: 120 MG
     Dates: start: 20111123

REACTIONS (1)
  - Hypoacusis [Not Recovered/Not Resolved]
